FAERS Safety Report 18668039 (Version 1)
Quarter: 2020Q4

REPORT INFORMATION
  Report Type: Spontaneous
  Country: US (occurrence: US)
  Receive Date: 20201226
  Receipt Date: 20201226
  Transmission Date: 20210114
  Serious: Yes (Hospitalization, Other)
  Sender: FDA-Public Use
  Company Number: None

PATIENT
  Age: 83 Year
  Sex: Male
  Weight: 99.5 kg

DRUGS (15)
  1. BUFFERIN 81 MG TABLET [Concomitant]
  2. INSULIN DEGLUDEC  20 UNITS DAILY [Concomitant]
  3. BAMLANIVIMAB. [Suspect]
     Active Substance: BAMLANIVIMAB
     Indication: COVID-19
     Dosage: ?          OTHER FREQUENCY:ONCE;?
     Route: 042
     Dates: start: 20201222, end: 20201222
  4. LISINOPRIL 40 MG TABLET DAILY [Concomitant]
  5. METFORMIN 1000 MG TWICE DAILY [Concomitant]
  6. ASPIRIN 325 MG TABLET [Concomitant]
  7. ACYCLOVIR 400 MG TABLET [Concomitant]
     Active Substance: ACYCLOVIR
  8. FARXIGA 5 MG TAB DAILY [Concomitant]
  9. ATORVASTATIN 80 MG TABLET DAILY [Concomitant]
  10. CEFDINIR 300 MG CAPSULE [Concomitant]
     Active Substance: CEFDINIR
  11. GLIMEPIRIDE 4 MG TAB TWICE DAILY [Concomitant]
  12. MULTIVITAMIN DAILY [Concomitant]
  13. TAMSULOSIN 0.4 MG DAILY [Concomitant]
  14. VITAMIN C 500 MG DAILY [Concomitant]
  15. TADALAFIL 5 MG DAILY [Concomitant]

REACTIONS (16)
  - Pneumonia aspiration [None]
  - Illness [None]
  - Retching [None]
  - Atrial fibrillation [None]
  - Tachycardia [None]
  - Cold sweat [None]
  - Lung disorder [None]
  - Hypersensitivity [None]
  - Generalised tonic-clonic seizure [None]
  - Hyperhidrosis [None]
  - Vomiting [None]
  - Pyrexia [None]
  - Bacteraemia [None]
  - Pallor [None]
  - Hypertension [None]
  - Tachypnoea [None]

NARRATIVE: CASE EVENT DATE: 20201222
